FAERS Safety Report 18267473 (Version 1)
Quarter: 2020Q3

REPORT INFORMATION
  Report Type: Spontaneous
  Country: US (occurrence: US)
  Receive Date: 20200915
  Receipt Date: 20200915
  Transmission Date: 20201103
  Serious: Yes (Other)
  Sender: FDA-Public Use
  Company Number: US-PFIZER INC-2020349622

PATIENT
  Age: 26 Year
  Sex: Female

DRUGS (4)
  1. BUSULFAN. [Suspect]
     Active Substance: BUSULFAN
     Indication: ACUTE PROMYELOCYTIC LEUKAEMIA
     Dosage: 16 MG/KG, CYCLIC (16 MG/KG FOR FOUR DAYS ON DAYS ?6 THROUGH ?3)
     Route: 048
  2. DAUNORUBICIN HYDROCHLORIDE. [Suspect]
     Active Substance: DAUNORUBICIN HYDROCHLORIDE
     Indication: ACUTE PROMYELOCYTIC LEUKAEMIA
     Dosage: 60 MG/M2, DAILY (60 MG/M2 EVERY DAY FOR THREE DOSES ON DAYS 4 THROUGH 6)
     Route: 042
  3. CYTARABINE. [Suspect]
     Active Substance: CYTARABINE
     Indication: ACUTE PROMYELOCYTIC LEUKAEMIA
     Dosage: UNK, CYCLIC (2 G/M2 EVERY 12 HOURS FOR 12 DOSES ON DAYS 1 THROUGH 6)
     Route: 042
  4. ETOPOSIDE. [Suspect]
     Active Substance: ETOPOSIDE
     Indication: ACUTE PROMYELOCYTIC LEUKAEMIA
     Dosage: 60 MG/KG, CYCLIC (60 MG/KG ON DAY ?2)
     Route: 042

REACTIONS (2)
  - Retinal vascular occlusion [Unknown]
  - Retinopathy [Unknown]
